FAERS Safety Report 4804897-2 (Version None)
Quarter: 2005Q4

REPORT INFORMATION
  Report Type: 
  Country: None (occurrence: None)
  Receive Date: 20051017
  Receipt Date: 20050927
  Transmission Date: 20060501
  Serious: Yes (Disabling)
  Sender: FDA-Public Use
  Company Number: DE_051017092

PATIENT
  Age: 60 Year
  Sex: Female
  Weight: 110 kg

DRUGS (5)
  1. YENTREVE (DULOXETINE HYDROCHLORIDE) [Suspect]
     Indication: STRESS INCONTINENCE
     Dosage: 80 MG DAY
     Dates: start: 20050114
  2. ORFIRIL LONG (VALPROATE SODIUM) [Concomitant]
  3. TREVILOR (VENLAFAXINE HYDROCHLORIDE) [Concomitant]
  4. SIMVASTATIN [Concomitant]
  5. BISOPROLOL FUMARATE [Concomitant]

REACTIONS (2)
  - RETINAL ARTERY OCCLUSION [None]
  - VISUAL DISTURBANCE [None]
